FAERS Safety Report 11468820 (Version 4)
Quarter: 2015Q4

REPORT INFORMATION
  Report Type: Spontaneous
  Country: US (occurrence: US)
  Receive Date: 20150908
  Receipt Date: 20151006
  Transmission Date: 20160304
  Serious: Yes (Hospitalization, Disabling, Other)
  Sender: FDA-Public Use
  Company Number: US-009507513-00090353

PATIENT
  Sex: Female

DRUGS (3)
  1. FOSAMAX [Suspect]
     Active Substance: ALENDRONATE SODIUM
     Indication: OSTEOPOROSIS
     Dosage: 70 MG, UNK
     Route: 048
     Dates: start: 2000, end: 20071007
  2. FOSAMAX [Suspect]
     Active Substance: ALENDRONATE SODIUM
     Indication: OSTEOGENESIS IMPERFECTA
     Dosage: 70 MG, UNK
     Route: 048
     Dates: start: 20041117, end: 20071007
  3. ALENDRONATE SODIUM. [Suspect]
     Active Substance: ALENDRONATE SODIUM
     Indication: OSTEOPOROSIS
     Dosage: 70 MG, UNK
     Route: 048
     Dates: start: 20090305, end: 20101014

REACTIONS (35)
  - Low turnover osteopathy [Unknown]
  - Muscle spasms [Unknown]
  - Cardiac murmur [Unknown]
  - Scapula fracture [Unknown]
  - Tooth disorder [Unknown]
  - Glaucoma [Unknown]
  - Stapedectomy [Unknown]
  - Clavicle fracture [Unknown]
  - Hearing impaired [Unknown]
  - Gingivitis [Unknown]
  - Swollen tongue [Unknown]
  - Bone disorder [Not Recovered/Not Resolved]
  - Rhinitis allergic [Unknown]
  - Diverticulum [Unknown]
  - Hiatus hernia [Unknown]
  - Vitreous detachment [Unknown]
  - Gastrooesophageal reflux disease [Unknown]
  - Herpes zoster [Unknown]
  - Insomnia [Unknown]
  - Femur fracture [Unknown]
  - Drug intolerance [Unknown]
  - Vitamin D deficiency [Unknown]
  - Seborrhoeic dermatitis [Unknown]
  - Sinus congestion [Unknown]
  - Pain in extremity [Unknown]
  - Swelling face [Unknown]
  - Device failure [Recovered/Resolved]
  - Essential hypertension [Recovering/Resolving]
  - Abscess oral [Unknown]
  - Oral surgery [Unknown]
  - Femur fracture [Recovered/Resolved]
  - Depression [Unknown]
  - Hyperlipidaemia [Unknown]
  - Dyspnoea [Unknown]
  - Fall [Unknown]

NARRATIVE: CASE EVENT DATE: 2007
